FAERS Safety Report 9301909 (Version 2)
Quarter: 2013Q2

REPORT INFORMATION
  Report Type: Report from Study
  Country: JP (occurrence: JP)
  Receive Date: 20130521
  Receipt Date: 20130607
  Transmission Date: 20140414
  Serious: Yes (Other)
  Sender: FDA-Public Use
  Company Number: JP-OTSUKA-JP-2013-11436

PATIENT
  Age: 79 Year
  Sex: Male
  Weight: 58.2 kg

DRUGS (9)
  1. SAMSCA [Suspect]
     Indication: FLUID RETENTION
     Dosage: 15 MG MILLIGRAM(S), QAM
     Route: 048
     Dates: start: 20130109, end: 20130110
  2. DIART [Concomitant]
     Indication: CARDIAC FAILURE
     Dosage: 60 MG MILLIGRAM(S), DAILY DOSE
     Route: 048
     Dates: end: 20130108
  3. FLUITRAN [Concomitant]
     Indication: CARDIAC FAILURE
     Dosage: 0.5 MG MILLIGRAM(S), DAILY DOSE
     Route: 048
     Dates: end: 20130108
  4. ARTIST [Concomitant]
     Indication: CARDIAC FAILURE
     Dosage: 30 MG MILLIGRAM(S), DAILY DOSE
     Route: 048
     Dates: end: 20121228
  5. ARTIST [Concomitant]
     Indication: ATRIAL FIBRILLATION
     Dosage: 20 MG MILLIGRAM(S), DAILY DOSE
     Route: 048
     Dates: start: 20121229, end: 20130108
  6. ARTIST [Concomitant]
     Dosage: 10 MG MILLIGRAM(S), DAILY DOSE
     Route: 048
     Dates: start: 20130109
  7. ALDACTONE A [Concomitant]
     Indication: CARDIAC FAILURE
     Dosage: 25 MG MILLIGRAM(S), DAILY DOSE
     Route: 048
     Dates: end: 20121228
  8. HANP [Concomitant]
     Indication: CARDIAC FAILURE
     Dosage: 5000 MCG, DAILY DOSE
     Route: 042
     Dates: start: 20130108, end: 20130110
  9. LASIX [Concomitant]
     Indication: CARDIAC FAILURE
     Dosage: 80 MG MILLIGRAM(S), DAILY DOSE
     Route: 042
     Dates: start: 20130108, end: 20130118

REACTIONS (2)
  - Hypernatraemia [Recovered/Resolved]
  - Blood urea increased [Unknown]
